FAERS Safety Report 8360501-0 (Version None)
Quarter: 2012Q2

REPORT INFORMATION
  Report Type: 
  Country: None (occurrence: None)
  Receive Date: 20120515
  Receipt Date: 20120506
  Transmission Date: 20120825
  Serious: Yes (Hospitalization)
  Sender: FDA-Public Use
  Company Number: JP-ALLERGAN-1203132US

PATIENT
  Age: 63 Year
  Sex: Male

DRUGS (10)
  1. BLINDED DEX 0.7MG INS (9632X) [Suspect]
     Dosage: UNK
     Route: 031
     Dates: start: 20111117, end: 20111117
  2. BLINDED DEX 0.35MG INS [Suspect]
     Dosage: UNK
     Route: 031
     Dates: start: 20111117, end: 20111117
  3. ZYRTEC [Concomitant]
     Indication: RHINITIS ALLERGIC
     Dosage: 10 MG, QD
     Dates: start: 20110512
  4. BLINDED DEX 0.35MG INS [Suspect]
     Indication: MACULAR OEDEMA
     Dosage: UNK
     Route: 031
     Dates: start: 20110512, end: 20110512
  5. NICEPIE [Concomitant]
     Indication: RHINITIS ALLERGIC
     Dosage: 100 A?G, QD
     Dates: start: 20110512
  6. BLINDED DEX 0.7MG INS (9632X) [Suspect]
     Indication: MACULAR OEDEMA
     Dosage: UNK
     Route: 031
     Dates: start: 20110512, end: 20110512
  7. NARCARICIN [Concomitant]
     Indication: GOUT
     Dosage: 25 G, QD
     Dates: start: 20110512
  8. CADEMESIN [Concomitant]
     Indication: HYPERTENSION
     Dosage: 2 MG, QD
     Dates: start: 20110512
  9. TSUSANTOO [Concomitant]
     Indication: SCIATICA
     Dosage: UNK
     Dates: start: 20110617
  10. PRIMPERAN TAB [Concomitant]
     Indication: NAUSEA
     Dosage: 5 MG, QD
     Dates: start: 20111202

REACTIONS (1)
  - INTRAOCULAR PRESSURE INCREASED [None]
